FAERS Safety Report 12994442 (Version 1)
Quarter: 2016Q4

REPORT INFORMATION
  Report Type: Spontaneous
  Country: US (occurrence: US)
  Receive Date: 20161202
  Receipt Date: 20161202
  Transmission Date: 20170207
  Serious: Yes (Hospitalization)
  Sender: FDA-Public Use
  Company Number: US-UNITED THERAPEUTICS-UNT-2016-017626

PATIENT
  Age: 1 Year
  Sex: Female
  Weight: 9.52 kg

DRUGS (1)
  1. REMODULIN [Suspect]
     Active Substance: TREPROSTINIL
     Indication: PULMONARY HYPERTENSION
     Dosage: 0.083 ?G/KG, CONTINUING
     Route: 058
     Dates: start: 20160714

REACTIONS (2)
  - Laryngoscopy [Recovered/Resolved]
  - Bronchoscopy [Recovered/Resolved]

NARRATIVE: CASE EVENT DATE: 20161114
